FAERS Safety Report 16472697 (Version 2)
Quarter: 2019Q3

REPORT INFORMATION
  Report Type: Report from Study
  Country: DE (occurrence: DE)
  Receive Date: 20190625
  Receipt Date: 20190819
  Transmission Date: 20191004
  Serious: Yes (Hospitalization)
  Sender: FDA-Public Use
  Company Number: DE-ROCHE-2337431

PATIENT
  Age: 32 Year
  Sex: Female
  Weight: 100 kg

DRUGS (16)
  1. AERIUS (DESLORATADINE) [Concomitant]
     Active Substance: DESLORATADINE
     Route: 048
     Dates: start: 20180925, end: 20180927
  2. AERIUS (DESLORATADINE) [Concomitant]
     Active Substance: DESLORATADINE
     Route: 048
     Dates: start: 20180320, end: 20180322
  3. PREDNISOLUT [PREDNISOLONE HEMISUCCINATE] [Concomitant]
     Indication: PROPHYLAXIS
     Route: 042
     Dates: start: 20180321, end: 20180321
  4. PREDNISOLUT [PREDNISOLONE HEMISUCCINATE] [Concomitant]
     Route: 042
     Dates: start: 20190328, end: 20190328
  5. OCRELIZUMAB. [Suspect]
     Active Substance: OCRELIZUMAB
     Indication: MULTIPLE SCLEROSIS
     Route: 042
     Dates: start: 20180307, end: 20180321
  6. AERIUS (DESLORATADINE) [Concomitant]
     Active Substance: DESLORATADINE
     Route: 048
     Dates: start: 20190327, end: 20190329
  7. RANITIDINE. [Concomitant]
     Active Substance: RANITIDINE
     Route: 048
     Dates: start: 20190327, end: 20190329
  8. RANITIDINE. [Concomitant]
     Active Substance: RANITIDINE
     Route: 048
     Dates: start: 20180925, end: 20180927
  9. AERIUS (DESLORATADINE) [Concomitant]
     Active Substance: DESLORATADINE
     Indication: PROPHYLAXIS
     Route: 048
     Dates: start: 20180306, end: 20180308
  10. DEKRISTOL [Concomitant]
     Active Substance: CHOLECALCIFEROL
     Indication: HYPOVITAMINOSIS
     Dosage: ONGOING
     Route: 048
     Dates: start: 20180110
  11. PREDNISOLUT [PREDNISOLONE HEMISUCCINATE] [Concomitant]
     Route: 042
     Dates: start: 20180307, end: 20180307
  12. RANITIDINE. [Concomitant]
     Active Substance: RANITIDINE
     Indication: PROPHYLAXIS
     Route: 048
     Dates: start: 20180306, end: 20180308
  13. RANITIDINE. [Concomitant]
     Active Substance: RANITIDINE
     Route: 048
     Dates: start: 20180320, end: 20180322
  14. VITAMIN C [Concomitant]
     Active Substance: ASCORBIC ACID
     Indication: PROPHYLAXIS
     Route: 065
     Dates: start: 201809
  15. MAGNESIUM [Concomitant]
     Active Substance: MAGNESIUM
     Indication: MUSCLE SPASMS
     Route: 048
     Dates: start: 20180919
  16. PREDNISOLUT [PREDNISOLONE HEMISUCCINATE] [Concomitant]
     Route: 042
     Dates: start: 20180926, end: 20180926

REACTIONS (3)
  - Sudden hearing loss [Recovered/Resolved]
  - Headache [Unknown]
  - Upper respiratory tract infection [Recovered/Resolved]

NARRATIVE: CASE EVENT DATE: 20180307
